FAERS Safety Report 5473728-2 (Version None)
Quarter: 2007Q4

REPORT INFORMATION
  Report Type: 
  Country: None (occurrence: None)
  Receive Date: 20071001
  Receipt Date: 20070919
  Transmission Date: 20080405
  Serious: Yes (Other)
  Sender: FDA-Public Use
  Company Number: GB-PFIZER INC-2007067542

PATIENT
  Age: 64 Year
  Sex: Female

DRUGS (3)
  1. LYRICA [Suspect]
     Indication: NEURALGIA
     Route: 048
  2. NARDIL [Suspect]
  3. AMITRIPTYLINE HCL [Concomitant]

REACTIONS (21)
  - BONE DISORDER [None]
  - BRAIN OEDEMA [None]
  - CONSTIPATION [None]
  - COUGH [None]
  - DIZZINESS [None]
  - DRUG WITHDRAWAL SYNDROME [None]
  - DYSPNOEA [None]
  - EMOTIONAL DISTRESS [None]
  - FACE OEDEMA [None]
  - FEELING ABNORMAL [None]
  - FOAMING AT MOUTH [None]
  - HAEMODIALYSIS [None]
  - HEADACHE [None]
  - MUSCLE SPASMS [None]
  - NASAL DRYNESS [None]
  - OEDEMA PERIPHERAL [None]
  - ORAL PAIN [None]
  - SUICIDE ATTEMPT [None]
  - TOOTH DISORDER [None]
  - TOOTHACHE [None]
  - URINARY INCONTINENCE [None]
